FAERS Safety Report 10082251 (Version 5)
Quarter: 2014Q3

REPORT INFORMATION
  Report Type: Spontaneous
  Country: IE (occurrence: IE)
  Receive Date: 20140416
  Receipt Date: 20140822
  Transmission Date: 20150326
  Serious: No
  Sender: FDA-Public Use
  Company Number: PHFR2013IE007047

PATIENT
  Age: 39 Year
  Sex: Male

DRUGS (5)
  1. ZOPICLONE [Concomitant]
     Active Substance: ZOPICLONE
     Indication: SCHIZOPHRENIA
     Dosage: 3.75 MG DAILY
     Route: 048
     Dates: start: 2004
  2. ZOPICLONE [Concomitant]
     Active Substance: ZOPICLONE
     Indication: INSOMNIA
  3. CLOZARIL [Suspect]
     Active Substance: CLOZAPINE
     Indication: SCHIZOPHRENIA
     Dosage: UNK
     Route: 048
     Dates: start: 20020129
  4. AMISULPRIDE [Concomitant]
     Active Substance: AMISULPRIDE
     Indication: SCHIZOPHRENIA
     Dosage: 650 MG DAILY
     Route: 048
     Dates: start: 2004
  5. CLOZARIL [Suspect]
     Active Substance: CLOZAPINE
     Dosage: 500 MG DAILY
     Route: 048
     Dates: start: 2004

REACTIONS (3)
  - Neutrophil count increased [Recovered/Resolved]
  - White blood cell count increased [Recovered/Resolved]
  - Respiratory tract infection [Recovered/Resolved]

NARRATIVE: CASE EVENT DATE: 201312
